FAERS Safety Report 6987498-X (Version None)
Quarter: 2010Q3

REPORT INFORMATION
  Report Type: 
  Country: None (occurrence: None)
  Receive Date: 20100916
  Receipt Date: 20100909
  Transmission Date: 20110219
  Serious: Yes (Death, Other)
  Sender: FDA-Public Use
  Company Number: PHHY2010GB60759

PATIENT
  Age: 37 Year
  Sex: Female

DRUGS (3)
  1. CLOZAPINE [Suspect]
     Dosage: 450 MG, QD
  2. VENLAFAXINE [Concomitant]
     Dosage: UNK
  3. DIHYDROCODEINE BITARTRATE INJ [Concomitant]

REACTIONS (8)
  - ABDOMINAL PAIN UPPER [None]
  - ANTIPSYCHOTIC DRUG LEVEL INCREASED [None]
  - CIRCULATORY COLLAPSE [None]
  - DIARRHOEA [None]
  - DRUG TOXICITY [None]
  - HEPATIC NECROSIS [None]
  - HEPATIC STEATOSIS [None]
  - SOMNOLENCE [None]
